FAERS Safety Report 6425199-7 (Version None)
Quarter: 2009Q4

REPORT INFORMATION
  Report Type: 
  Country: None (occurrence: None)
  Receive Date: 20091103
  Receipt Date: 20091020
  Transmission Date: 20100525
  Serious: Yes (Hospitalization)
  Sender: FDA-Public Use
  Company Number: CZ-BRISTOL-MYERS SQUIBB COMPANY-14830541

PATIENT
  Sex: Male

DRUGS (7)
  1. SINEMET [Suspect]
     Indication: PARKINSON'S DISEASE
     Dosage: 50MGQ6H 2000-01,100MGQ6H 01-04, 150MG 5XD 04-08, 200MG 5XD 08-CONT.
     Route: 048
     Dates: start: 20000101
  2. ALPRAZOLAM [Suspect]
     Dates: start: 20080101
  3. CITALOPRAM HYDROBROMIDE [Suspect]
     Dates: start: 20080101
  4. PERGOLIDE [Suspect]
     Dates: start: 20080101, end: 20080301
  5. PRAMIPEXOLE DIHYDROCHLORIDE [Suspect]
     Dates: start: 20080301
  6. SPIRONOLACTONE [Suspect]
     Dates: start: 20080101
  7. TROXERUTIN [Suspect]
     Dates: start: 20080101

REACTIONS (1)
  - GENERALISED OEDEMA [None]
